FAERS Safety Report 5118867-0 (Version None)
Quarter: 2006Q3

REPORT INFORMATION
  Report Type: 
  Country: None (occurrence: None)
  Receive Date: 20060927
  Receipt Date: 20060919
  Transmission Date: 20061208
  Serious: Yes (Hospitalization)
  Sender: FDA-Public Use
  Company Number: 2006-02419

PATIENT
  Age: 69 Year
  Sex: Male
  Weight: 66 kg

DRUGS (21)
  1. VELCADE [Suspect]
     Indication: MULTIPLE MYELOMA
     Dosage: 1.70 MG, INTRAVENOUS
     Route: 042
     Dates: start: 20060401
  2. MELPHALAN (MELPHALAN) VIAL [Suspect]
     Indication: MULTIPLE MYELOMA
     Dosage: 200.00 MG, INTRAVENOUS
     Route: 042
     Dates: start: 20060804
  3. DEXAMETHASONE [Suspect]
     Indication: MULTIPLE MYELOMA
     Dosage: 20.00 MG, ORAL
     Route: 048
     Dates: start: 20060719, end: 20060722
  4. CISPLATIN [Suspect]
     Indication: MULTIPLE MYELOMA
     Dosage: 17.00 MG, INTRAVENOUS
     Route: 042
     Dates: start: 20060325
  5. DOXORUBICIN HCL [Suspect]
     Indication: MULTIPLE MYELOMA
     Dosage: 17.00 MG, INTRAVENOUS
     Route: 042
     Dates: start: 20060325
  6. THALIDOMIDE (THALIDOMIDE) [Suspect]
     Indication: MULTIPLE MYELOMA
     Dosage: 50.00 MG, ORAL
     Route: 048
  7. CYCLOPHOSPHAMIDE [Suspect]
     Indication: MULTIPLE MYELOMA
     Dosage: 648.00 MG, INTRAVENOUS
     Route: 042
     Dates: start: 20060325
  8. ETOPOSIDE [Suspect]
     Indication: MULTIPLE MYELOMA
     Dosage: 68.00 MG, INTRAVENOUS
     Route: 042
     Dates: start: 20060325
  9. ZOLOFT [Concomitant]
  10. PROTONIX [Concomitant]
  11. IMODIUM [Concomitant]
  12. PROCRIT [Concomitant]
  13. FOLIC ACID [Concomitant]
  14. POTASSIUM CHLORIDE [Concomitant]
  15. ACYCLOVIR [Concomitant]
  16. COLESTID [Concomitant]
  17. MAGIC MOUTHWASH [Concomitant]
  18. FLOMAX [Concomitant]
  19. PROSCAR [Concomitant]
  20. DETROL [Concomitant]
  21. LEVAQUIN [Concomitant]

REACTIONS (1)
  - COLITIS [None]
